FAERS Safety Report 4469707-4 (Version None)
Quarter: 2004Q3

REPORT INFORMATION
  Report Type: 
  Country: None (occurrence: None)
  Receive Date: 20040917
  Receipt Date: 20040419
  Transmission Date: 20050211
  Serious: Yes (Hospitalization)
  Sender: FDA-Public Use
  Company Number: 2004-BP-03086BP(0)

PATIENT
  Age: 28 Year
  Sex: Female

DRUGS (1)
  1. VIRAMUNE [Suspect]
     Indication: HIV INFECTION
     Dosage: 200 MG PO
     Route: 048
     Dates: start: 20040326, end: 20040411

REACTIONS (2)
  - RASH [None]
  - STEVENS-JOHNSON SYNDROME [None]
